FAERS Safety Report 25465986 (Version 1)
Quarter: 2025Q2

REPORT INFORMATION
  Report Type: Spontaneous
  Country: CA (occurrence: CA)
  Receive Date: 20250623
  Receipt Date: 20250623
  Transmission Date: 20250716
  Serious: Yes (Hospitalization)
  Sender: CELLTRION
  Company Number: CA-CELLTRION INC.-2025CA019441

PATIENT

DRUGS (2)
  1. INFLIXIMAB [Suspect]
     Active Substance: INFLIXIMAB
     Indication: Crohn^s disease
     Dosage: 120 MG, EVERY 7 DAYS (MAINTENANCE)
     Route: 058
     Dates: start: 20240221
  2. PANTALOC [Concomitant]

REACTIONS (2)
  - Loss of therapeutic response [Unknown]
  - Intentional product use issue [Unknown]
